FAERS Safety Report 5384961-2 (Version None)
Quarter: 2007Q3

REPORT INFORMATION
  Report Type: 
  Country: None (occurrence: None)
  Receive Date: 20070709
  Receipt Date: 20070626
  Transmission Date: 20080115
  Serious: Yes (Hospitalization)
  Sender: FDA-Public Use
  Company Number: GXKR2007US04757

PATIENT
  Age: 2 Year
  Sex: Female

DRUGS (1)
  1. METHADONE HCL [Suspect]
     Indication: MEDICATION ERROR

REACTIONS (10)
  - ACCIDENTAL EXPOSURE [None]
  - ACCIDENTAL OVERDOSE [None]
  - CEREBRAL ISCHAEMIA [None]
  - COMPUTERISED TOMOGRAM ABNORMAL [None]
  - CYANOSIS [None]
  - MIOSIS [None]
  - NERVOUS SYSTEM DISORDER [None]
  - RESPIRATORY ACIDOSIS [None]
  - RESPIRATORY FAILURE [None]
  - UNRESPONSIVE TO STIMULI [None]
